FAERS Safety Report 22122462 (Version 1)
Quarter: 2023Q1

REPORT INFORMATION
  Report Type: Spontaneous
  Country: JP (occurrence: JP)
  Receive Date: 20230321
  Receipt Date: 20230321
  Transmission Date: 20230418
  Serious: Yes (Hospitalization, Other)
  Sender: FDA-Public Use
  Company Number: JP-BAYER-2023A017035

PATIENT
  Age: 62 Year
  Sex: Female
  Weight: 56.4 kg

DRUGS (5)
  1. STIVARGA [Suspect]
     Active Substance: REGORAFENIB
     Indication: Rectal cancer recurrent
     Dosage: UNK
     Dates: start: 20221205, end: 20221219
  2. STIVARGA [Suspect]
     Active Substance: REGORAFENIB
     Indication: Metastasis
  3. PYRIDOXAL [Concomitant]
     Active Substance: PYRIDOXAL
     Indication: Prophylaxis
     Dosage: 1 DF, TID
     Route: 048
  4. LOXOPROFEN SODIUM [Concomitant]
     Active Substance: LOXOPROFEN SODIUM
     Indication: Analgesic therapy
     Dosage: 1 DF, BID
     Route: 048
  5. REBAMIPIDE [Concomitant]
     Active Substance: REBAMIPIDE
     Indication: Analgesic therapy
     Dosage: 1 DF, BID
     Route: 048

REACTIONS (24)
  - Drug eruption [Recovering/Resolving]
  - Dermatitis exfoliative generalised [Recovering/Resolving]
  - Liver disorder [Recovering/Resolving]
  - Platelet count decreased [Recovered/Resolved]
  - Ascites [None]
  - Skin disorder [Recovering/Resolving]
  - Dysphonia [Recovering/Resolving]
  - Pyrexia [None]
  - Jaundice [None]
  - Alanine aminotransferase increased [Recovering/Resolving]
  - Bilirubin conjugated increased [Recovering/Resolving]
  - Aspartate aminotransferase increased [Recovering/Resolving]
  - Blood bilirubin increased [Recovering/Resolving]
  - Blood alkaline phosphatase increased [Recovering/Resolving]
  - Proteinuria [None]
  - Sinus tachycardia [None]
  - Asthenia [None]
  - Fatigue [None]
  - Decreased appetite [None]
  - Nausea [None]
  - Vomiting [None]
  - Abdominal pain upper [None]
  - Pruritus [None]
  - Rash [None]

NARRATIVE: CASE EVENT DATE: 20221201
